FAERS Safety Report 4840241-2 (Version None)
Quarter: 2005Q4

REPORT INFORMATION
  Report Type: 
  Country: None (occurrence: None)
  Receive Date: 20051129
  Receipt Date: 20051025
  Transmission Date: 20060501
  Serious: Yes (Hospitalization)
  Sender: FDA-Public Use
  Company Number: DE-MERCK-0510DEU00133

PATIENT
  Age: 80 Year
  Sex: Female
  Weight: 70 kg

DRUGS (5)
  1. FOSAMAX [Suspect]
     Indication: OSTEOPOROSIS
     Route: 048
     Dates: start: 20050301, end: 20051024
  2. PHENPROCOUMON [Concomitant]
     Route: 065
     Dates: start: 20050301, end: 20051024
  3. RAMIPRIL [Concomitant]
     Route: 065
     Dates: start: 20030101, end: 20051024
  4. PREDNISONE [Concomitant]
     Route: 065
     Dates: start: 20040701, end: 20051024
  5. OXAZEPAM [Concomitant]
     Route: 048
     Dates: start: 20030601, end: 20051024

REACTIONS (2)
  - ANTIPHOSPHOLIPID SYNDROME [None]
  - THROMBOCYTOPENIA [None]
